FAERS Safety Report 6508805-8 (Version None)
Quarter: 2009Q4

REPORT INFORMATION
  Report Type: 
  Country: None (occurrence: None)
  Receive Date: 20091221
  Receipt Date: 20090826
  Transmission Date: 20100525
  Serious: No
  Sender: FDA-Public Use
  Company Number: US-ASTRAZENECA-2009SE10021

PATIENT
  Sex: Female
  Weight: 56 kg

DRUGS (8)
  1. CRESTOR [Suspect]
     Route: 048
     Dates: start: 20090501
  2. SYNTHROID [Concomitant]
  3. LISINOPRIL [Concomitant]
  4. RETADINE [Concomitant]
  5. NEXIUM [Concomitant]
  6. HUMALOG [Concomitant]
  7. LANTUS [Concomitant]
  8. METFORMAN [Concomitant]

REACTIONS (1)
  - PAIN [None]
